FAERS Safety Report 20456692 (Version 4)
Quarter: 2022Q1

REPORT INFORMATION
  Report Type: Report from Study
  Country: TR (occurrence: TR)
  Receive Date: 20220210
  Receipt Date: 20220228
  Transmission Date: 20220424
  Serious: Yes (Hospitalization)
  Sender: FDA-Public Use
  Company Number: US-CELGENE-TUR-20220201764

PATIENT
  Age: 66 Year
  Sex: Male

DRUGS (11)
  1. POMALIDOMIDE [Suspect]
     Active Substance: POMALIDOMIDE
     Indication: Plasma cell myeloma
     Dosage: 4 MILLIGRAM
     Route: 048
     Dates: end: 20210922
  2. BELANTAMAB MAFODOTIN [Suspect]
     Active Substance: BELANTAMAB MAFODOTIN
     Indication: Plasma cell myeloma
     Dosage: 2.5 MILLIGRAM/KILOGRAM
     Route: 041
     Dates: end: 20210922
  3. DEXAMETHASONE [Suspect]
     Active Substance: DEXAMETHASONE
     Indication: Plasma cell myeloma
     Route: 048
     Dates: end: 20210922
  4. ENOXAPARIN SODIUM [Concomitant]
     Active Substance: ENOXAPARIN SODIUM
     Indication: Product used for unknown indication
     Dosage: 1.2 MILLILITER
     Route: 058
     Dates: start: 20210922
  5. ALLOPURINOL [Concomitant]
     Active Substance: ALLOPURINOL
     Indication: Prophylaxis
     Dosage: 300 MILLIGRAM
     Route: 048
     Dates: start: 20210915
  6. TRIMETHOPRIM [Concomitant]
     Active Substance: TRIMETHOPRIM
     Indication: Antibiotic prophylaxis
     Route: 048
     Dates: start: 20210915
  7. SULFAMETHOXAZOLE [Concomitant]
     Active Substance: SULFAMETHOXAZOLE
     Indication: Prophylaxis
     Route: 048
     Dates: start: 20210915
  8. LANSOPRAZOLE [Concomitant]
     Active Substance: LANSOPRAZOLE
     Indication: Prophylaxis
     Dosage: 30 MILLIGRAM
     Route: 065
     Dates: start: 20210915
  9. VALACYCLOVIR [Concomitant]
     Active Substance: VALACYCLOVIR HYDROCHLORIDE
     Indication: Antiviral prophylaxis
     Dosage: 500 MILLIGRAM
     Route: 048
     Dates: start: 20210915
  10. TROPICAMIDE [Concomitant]
     Active Substance: TROPICAMIDE
     Indication: Product used for unknown indication
     Dosage: 5 MILLILITER
     Route: 047
     Dates: start: 20210915
  11. FAMOTIDINE [Concomitant]
     Active Substance: FAMOTIDINE
     Indication: Gastritis prophylaxis
     Dosage: 40 MILLIGRAM
     Route: 048
     Dates: start: 20211206, end: 20211209

REACTIONS (2)
  - Cytomegalovirus infection [Recovered/Resolved]
  - Pancytopenia [Recovered/Resolved]

NARRATIVE: CASE EVENT DATE: 20210922
